FAERS Safety Report 9330608 (Version 2)
Quarter: 2013Q2

REPORT INFORMATION
  Report Type: Spontaneous
  Country: CA (occurrence: CA)
  Receive Date: 20130605
  Receipt Date: 20130613
  Transmission Date: 20140414
  Serious: Yes (Hospitalization)
  Sender: FDA-Public Use
  Company Number: CA-B.I. PHARMACEUTICALS,INC./RIDGEFIELD-2013-CN-01027CN

PATIENT
  Age: 64 Year
  Sex: Male

DRUGS (5)
  1. PRADAXA [Suspect]
     Indication: ATRIAL FIBRILLATION
     Dosage: 300 MG
     Dates: start: 20130418
  2. LIPATOR [Concomitant]
  3. VASOTEC [Concomitant]
  4. METOPROLOL [Concomitant]
  5. MULTAQ [Concomitant]
     Indication: ATRIAL FIBRILLATION

REACTIONS (1)
  - Myocardial infarction [Recovered/Resolved]
